FAERS Safety Report 16201156 (Version 1)
Quarter: 2019Q2

REPORT INFORMATION
  Report Type: Spontaneous
  Country: US (occurrence: US)
  Receive Date: 20190416
  Receipt Date: 20190416
  Transmission Date: 20190711
  Serious: Yes (Other)
  Sender: FDA-Public Use
  Company Number: US-CIPLA LTD.-2019US01956

PATIENT

DRUGS (5)
  1. ZANIDINE [Concomitant]
     Indication: MUSCLE RELAXANT THERAPY
     Dosage: UNK, QD
     Route: 065
  2. LAMOTRIGINE. [Suspect]
     Active Substance: LAMOTRIGINE
     Indication: EPILEPSY
     Dosage: UNK
     Route: 065
  3. LAMOTRIGINE. [Suspect]
     Active Substance: LAMOTRIGINE
     Dosage: 150 MG IN THE MORNING, 150 MG IN THE AFTERNOON AND 375 MG IN THE EVENING
     Route: 048
     Dates: start: 201808
  4. LORAZEPAM. [Concomitant]
     Active Substance: LORAZEPAM
     Indication: MUSCLE RELAXANT THERAPY
     Dosage: UNK, QD
     Route: 065
  5. DICLOFEN                           /00372302/ [Concomitant]
     Active Substance: DICLOFENAC SODIUM
     Indication: MUSCLE RELAXANT THERAPY
     Dosage: UNK, QD
     Route: 065

REACTIONS (3)
  - Drug ineffective [Unknown]
  - Seizure cluster [Not Recovered/Not Resolved]
  - Product substitution issue [Unknown]

NARRATIVE: CASE EVENT DATE: 201808
